FAERS Safety Report 4300704-5 (Version None)
Quarter: 2004Q1

REPORT INFORMATION
  Report Type: 
  Country: None (occurrence: None)
  Receive Date: 20040219
  Receipt Date: 20040219
  Transmission Date: 20041129
  Serious: Yes (Hospitalization)
  Sender: FDA-Public Use
  Company Number: None

PATIENT
  Sex: Female

DRUGS (1)
  1. ZITHROMAX [Suspect]
     Dosage: 500 MG X 1 IM
     Route: 030
     Dates: start: 20031107

REACTIONS (8)
  - BLOOD POTASSIUM DECREASED [None]
  - CARDIAC FLUTTER [None]
  - HYPOAESTHESIA [None]
  - HYPOTENSION [None]
  - INJECTION SITE INDURATION [None]
  - MEDICATION ERROR [None]
  - PAIN IN EXTREMITY [None]
  - TACHYCARDIA [None]
